FAERS Safety Report 6965911-1 (Version None)
Quarter: 2010Q3

REPORT INFORMATION
  Report Type: 
  Country: None (occurrence: None)
  Receive Date: 20100903
  Receipt Date: 20100826
  Transmission Date: 20110219
  Serious: Yes (Other)
  Sender: FDA-Public Use
  Company Number: BR-PFIZER INC-2010066131

PATIENT
  Age: 47 Year
  Sex: Female
  Weight: 78 kg

DRUGS (3)
  1. CHAMPIX [Suspect]
     Indication: SMOKING CESSATION THERAPY
     Dosage: 0.5 MG, 2X/DAY (EVERY 12 HOURS)
     Route: 048
     Dates: start: 20100514, end: 20100516
  2. CHAMPIX [Suspect]
     Dosage: 1 MG, 2X/DAY
     Route: 048
     Dates: start: 20100517, end: 20100801
  3. BROMAZEPAM [Concomitant]
     Indication: PREMENSTRUAL SYNDROME
     Dosage: 3 MG, 2X/DAY

REACTIONS (4)
  - ANXIETY [None]
  - ARRHYTHMIA [None]
  - FLUID RETENTION [None]
  - MAJOR DEPRESSION [None]
